FAERS Safety Report 19791265 (Version 1)
Quarter: 2021Q3

REPORT INFORMATION
  Report Type: Spontaneous
  Country: DE (occurrence: DE)
  Receive Date: 20210906
  Receipt Date: 20210906
  Transmission Date: 20211014
  Serious: Yes (Other)
  Sender: FDA-Public Use
  Company Number: DE-ALLERGAN-2131067US

PATIENT
  Sex: Male
  Weight: 75 kg

DRUGS (2)
  1. CARIPRAZINE HCL ? BP [Suspect]
     Active Substance: CARIPRAZINE HYDROCHLORIDE
     Indication: SCHIZOPHRENIA
     Dosage: ACTUAL: 1.5 MG QD, 1?0?0?0
     Route: 048
     Dates: start: 20210628
  2. RISPERIDON [Concomitant]
     Active Substance: RISPERIDONE

REACTIONS (6)
  - Condition aggravated [Recovered/Resolved]
  - Reduced facial expression [Recovered/Resolved]
  - Tremor [Recovered/Resolved]
  - Anxiety [Recovered/Resolved]
  - Hallucination, auditory [Recovered/Resolved]
  - Insomnia [Recovered/Resolved]

NARRATIVE: CASE EVENT DATE: 202106
